FAERS Safety Report 5217146-0 (Version None)
Quarter: 2007Q1

REPORT INFORMATION
  Report Type: 
  Country: None (occurrence: None)
  Receive Date: 20070123
  Receipt Date: 20070123
  Transmission Date: 20070707
  Serious: Yes (Hospitalization)
  Sender: FDA-Public Use
  Company Number: None

PATIENT
  Age: 59 Year
  Sex: Male
  Weight: 69.4003 kg

DRUGS (1)
  1. TYLENOL W/ CODEINE NO. 4 [Suspect]
     Indication: BACK PAIN
     Dosage: PO-QID
     Route: 048
     Dates: start: 20060901, end: 20061215

REACTIONS (1)
  - RESPIRATORY DEPRESSION [None]
